FAERS Safety Report 5588343-X (Version None)
Quarter: 2008Q1

REPORT INFORMATION
  Report Type: 
  Country: None (occurrence: None)
  Receive Date: 20080111
  Receipt Date: 20071115
  Transmission Date: 20080703
  Serious: No
  Sender: FDA-Public Use
  Company Number: A0683561A

PATIENT
  Age: 67 Year
  Sex: Female

DRUGS (4)
  1. TYKERB [Suspect]
     Indication: BREAST CANCER
     Dosage: 5TAB PER DAY
     Route: 048
     Dates: start: 20070919, end: 20070921
  2. LISINOPRIL [Concomitant]
  3. BISOPROLOL [Concomitant]
  4. BONIVA [Concomitant]

REACTIONS (6)
  - DRUG ADMINISTRATION ERROR [None]
  - DYSGEUSIA [None]
  - DYSPHAGIA [None]
  - OESOPHAGEAL PAIN [None]
  - THROAT IRRITATION [None]
  - TREATMENT NONCOMPLIANCE [None]
